FAERS Safety Report 8501882-4 (Version None)
Quarter: 2012Q3

REPORT INFORMATION
  Report Type: 
  Country: None (occurrence: None)
  Receive Date: 20120702
  Receipt Date: 20120622
  Transmission Date: 20120928
  Serious: Yes (Hospitalization)
  Sender: FDA-Public Use
  Company Number: DKLU1082282

PATIENT
  Age: 24 Year
  Sex: Male
  Weight: 46 kg

DRUGS (8)
  1. SABRIL [Suspect]
     Indication: COMPLEX PARTIAL SEIZURES
     Dosage: 500 MG MILLIGRAM(S), THEN INCREASED BY 500 MG QWEEK UNTIL 3 PK 1500 MG MILLIGRAM(S), 2 IN 1 D
     Dates: start: 20111215
  2. LEXAPRO FILM-COATED TABLETS (ESCITALOPRAM-TABLETS) (ESCITALOPRAM) [Concomitant]
  3. DEPAKOTE [Concomitant]
  4. TOPAMAX [Concomitant]
  5. ZONISAMIDE [Concomitant]
  6. ELAVIL [Concomitant]
  7. VITAMIN SUPPLEMENTS (VITAMINS NOS) [Concomitant]
  8. VITAMIN D [Concomitant]

REACTIONS (3)
  - PNEUMONIA [None]
  - HYPERVENTILATION [None]
  - RESPIRATORY DISORDER [None]
